FAERS Safety Report 15419040 (Version 1)
Quarter: 2018Q3

REPORT INFORMATION
  Report Type: Spontaneous
  Country: IT (occurrence: IT)
  Receive Date: 20180924
  Receipt Date: 20180924
  Transmission Date: 20181010
  Serious: Yes (Hospitalization)
  Sender: FDA-Public Use
  Company Number: IT-SA-2018SA256614

PATIENT
  Age: 69 Year
  Sex: Male

DRUGS (12)
  1. PLAVIX [Suspect]
     Active Substance: CLOPIDOGREL BISULFATE
     Route: 065
  2. OMEPRAZOLE. [Concomitant]
     Active Substance: OMEPRAZOLE
  3. ADALAT [Concomitant]
     Active Substance: NIFEDIPINE
  4. CARDURA [Concomitant]
     Active Substance: DOXAZOSIN MESYLATE
  5. ACETYLSALICYLIC ACID [Interacting]
     Active Substance: ASPIRIN
     Route: 065
  6. LASIX [FUROSEMIDE SODIUM] [Concomitant]
  7. QUETIAPINE. [Concomitant]
     Active Substance: QUETIAPINE
  8. TORVAST [Concomitant]
     Active Substance: ATORVASTATIN
  9. KANRENOL [Concomitant]
     Active Substance: CANRENOATE POTASSIUM
  10. METFORMIN [Concomitant]
     Active Substance: METFORMIN HYDROCHLORIDE
  11. ZOLOFT [Concomitant]
     Active Substance: SERTRALINE HYDROCHLORIDE
  12. LOSARTAN. [Concomitant]
     Active Substance: LOSARTAN

REACTIONS (2)
  - Drug interaction [Unknown]
  - Subdural haematoma [Unknown]

NARRATIVE: CASE EVENT DATE: 20180617
